FAERS Safety Report 12240741 (Version 1)
Quarter: 2016Q2

REPORT INFORMATION
  Report Type: Spontaneous
  Country: US (occurrence: US)
  Receive Date: 20160406
  Receipt Date: 20160406
  Transmission Date: 20160815
  Serious: Yes (Other)
  Sender: FDA-Public Use
  Company Number: US-AMGEN-USASP2016040929

PATIENT
  Age: 39 Year
  Sex: Female

DRUGS (14)
  1. ALBUTEROL SULFATE. [Concomitant]
     Active Substance: ALBUTEROL SULFATE
     Dosage: UNK
  2. LOMOTIL [Concomitant]
     Active Substance: ATROPINE SULFATE\DIPHENOXYLATE HYDROCHLORIDE
     Dosage: UNK
  3. GABAPENTIN. [Concomitant]
     Active Substance: GABAPENTIN
     Dosage: UNK
  4. XYZAL [Concomitant]
     Active Substance: LEVOCETIRIZINE DIHYDROCHLORIDE
     Dosage: UNK
  5. EPINEPHRINE HCL [Concomitant]
     Active Substance: EPINEPHRINE
     Dosage: UNK
  6. PROPANOLOL HYDROCHLORIDE [Concomitant]
     Active Substance: PROPRANOLOL HYDROCHLORIDE
     Dosage: UNK
  7. TOPAMAX [Concomitant]
     Active Substance: TOPIRAMATE
     Dosage: UNK
  8. PRAZOSIN HCL [Concomitant]
     Active Substance: PRAZOSIN HYDROCHLORIDE
     Dosage: UNK
  9. FENTANYL. [Concomitant]
     Active Substance: FENTANYL
     Dosage: UNK
  10. FOLIC ACID. [Concomitant]
     Active Substance: FOLIC ACID
     Dosage: UNK
  11. ENBREL [Suspect]
     Active Substance: ETANERCEPT
     Indication: RHEUMATOID ARTHRITIS
     Dosage: 50 MG, ONCE WEEKLY
     Route: 058
  12. PLAQUENIL                          /00072602/ [Concomitant]
     Active Substance: HYDROXYCHLOROQUINE DIPHOSPHATE
     Dosage: UNK
  13. CYCLOBENZAPRINE HCL [Concomitant]
     Active Substance: CYCLOBENZAPRINE HYDROCHLORIDE
     Dosage: UNK
  14. BENAZEPRIL HCL [Concomitant]
     Active Substance: BENAZEPRIL HYDROCHLORIDE
     Dosage: UNK

REACTIONS (11)
  - Muscle twitching [Unknown]
  - Anaphylactic reaction [Unknown]
  - Mobility decreased [Unknown]
  - Systemic lupus erythematosus [Unknown]
  - Hypoaesthesia [Unknown]
  - Chest discomfort [Unknown]
  - Paraesthesia [Unknown]
  - Throat tightness [Unknown]
  - Dyspnoea [Unknown]
  - Heart rate increased [Unknown]
  - Balance disorder [Unknown]

NARRATIVE: CASE EVENT DATE: 20160330
